FAERS Safety Report 5140615-9 (Version None)
Quarter: 2006Q4

REPORT INFORMATION
  Report Type: 
  Country: None (occurrence: None)
  Receive Date: 20061025
  Receipt Date: 20061009
  Transmission Date: 20070319
  Serious: Yes (Hospitalization)
  Sender: FDA-Public Use
  Company Number: MEDI-0005017

PATIENT
  Age: 27 Month

DRUGS (5)
  1. SYNAGIS [Suspect]
     Indication: ANTIVIRAL PROPHYLAXIS
     Dosage: 120 MG, INTRAMUSCULAR
     Route: 030
     Dates: start: 20051027, end: 20060213
  2. SYNAGIS [Suspect]
     Indication: ANTIVIRAL PROPHYLAXIS
     Dosage: 120 MG, INTRAMUSCULAR
     Route: 030
     Dates: start: 20051027
  3. SYNAGIS [Suspect]
     Indication: ANTIVIRAL PROPHYLAXIS
     Dosage: 120 MG, INTRAMUSCULAR
     Route: 030
     Dates: start: 20051117
  4. SYNAGIS [Suspect]
     Indication: ANTIVIRAL PROPHYLAXIS
     Dosage: 120 MG, INTRAMUSCULAR
     Route: 030
     Dates: start: 20051215
  5. SYNAGIS [Suspect]
     Indication: ANTIVIRAL PROPHYLAXIS
     Dosage: 120 MG, INTRAMUSCULAR
     Route: 030
     Dates: start: 20060116

REACTIONS (1)
  - LUNG DISORDER [None]
